FAERS Safety Report 8612236-4 (Version None)
Quarter: 2012Q3

REPORT INFORMATION
  Report Type: 
  Country: None (occurrence: None)
  Receive Date: 20120822
  Receipt Date: 20120814
  Transmission Date: 20120928
  Serious: Yes (Other)
  Sender: FDA-Public Use
  Company Number: US-BAYER-2012-039133

PATIENT
  Age: 40 Year
  Sex: Female
  Weight: 61.224 kg

DRUGS (2)
  1. CIPROFLOXACIN HCL [Concomitant]
     Dosage: 500 MG, UNK
     Route: 048
     Dates: start: 20090825
  2. YAZ [Suspect]
     Indication: CONTRACEPTION
     Dosage: UNK
     Dates: start: 20090825, end: 20090829

REACTIONS (10)
  - CHOLECYSTECTOMY [None]
  - ABDOMINAL PAIN [None]
  - MENTAL DISORDER [None]
  - NAUSEA [None]
  - URINARY INCONTINENCE [None]
  - INJURY [None]
  - ABASIA [None]
  - HYPERTENSION [None]
  - APHAGIA [None]
  - PAIN [None]
